FAERS Safety Report 25881897 (Version 1)
Quarter: 2025Q4

REPORT INFORMATION
  Report Type: Report from Study
  Country: US (occurrence: US)
  Receive Date: 20251005
  Receipt Date: 20251005
  Transmission Date: 20260118
  Serious: Yes (Other)
  Sender: ABBVIE
  Company Number: US-ABBVIE-6487106

PATIENT
  Age: 68 Year
  Sex: Female

DRUGS (32)
  1. VENCLEXTA [Suspect]
     Active Substance: VENETOCLAX
     Indication: Chronic lymphocytic leukaemia
     Dosage: 7 DAYS
     Route: 048
     Dates: start: 20250909
  2. VENCLEXTA [Suspect]
     Active Substance: VENETOCLAX
     Indication: Chronic lymphocytic leukaemia
     Dosage: 7 DAYS
     Route: 048
  3. VENCLEXTA [Suspect]
     Active Substance: VENETOCLAX
     Indication: Chronic lymphocytic leukaemia
     Dosage: 7 DAYS
     Route: 048
  4. VENCLEXTA [Suspect]
     Active Substance: VENETOCLAX
     Indication: Chronic lymphocytic leukaemia
     Dosage: 7 DAYS
     Route: 048
  5. ACALABRUTINIB [Concomitant]
     Active Substance: ACALABRUTINIB
     Indication: Product used for unknown indication
     Route: 048
  6. ACETAMINOPHEN [Concomitant]
     Active Substance: ACETAMINOPHEN
     Indication: Product used for unknown indication
  7. ACYCLOVIR [Concomitant]
     Active Substance: ACYCLOVIR
     Indication: Product used for unknown indication
     Route: 048
  8. ALLOPURINOL [Concomitant]
     Active Substance: ALLOPURINOL
     Indication: Product used for unknown indication
     Route: 048
  9. ATOVAQUONE [Concomitant]
     Active Substance: ATOVAQUONE
     Indication: Product used for unknown indication
     Dosage: 750MG/5 ML
     Route: 048
  10. BUDESONIDE\FORMOTEROL [Concomitant]
     Active Substance: BUDESONIDE\FORMOTEROL
     Indication: Product used for unknown indication
  11. CETIRIZINE [Concomitant]
     Active Substance: CETIRIZINE HYDROCHLORIDE
     Indication: Product used for unknown indication
  12. IBRUTINIB [Concomitant]
     Active Substance: IBRUTINIB
     Indication: Product used for unknown indication
     Dosage: 3 TABLETS DAILY
     Route: 048
  13. IBUPROFEN [Concomitant]
     Active Substance: IBUPROFEN
     Indication: Product used for unknown indication
  14. PANTOPRAZOLE [Concomitant]
     Active Substance: PANTOPRAZOLE
     Indication: Product used for unknown indication
  15. VALACYCLOVIR [Concomitant]
     Active Substance: VALACYCLOVIR HYDROCHLORIDE
     Indication: Product used for unknown indication
  16. ACTIVASE [Concomitant]
     Active Substance: ALTEPLASE
     Indication: Infection
  17. PEGASYS [Concomitant]
     Active Substance: PEGINTERFERON ALFA-2A
     Indication: Inflammation
  18. XOLAIR [Concomitant]
     Active Substance: OMALIZUMAB
     Indication: Inflammation
  19. RITUXAN [Concomitant]
     Active Substance: RITUXIMAB
     Indication: Inflammation
  20. ACTEMRA [Concomitant]
     Active Substance: TOCILIZUMAB
     Indication: Bone disorder
  21. BONIVA [Concomitant]
     Active Substance: IBANDRONATE SODIUM
     Indication: Neoplasm malignant
  22. XELODA [Concomitant]
     Active Substance: CAPECITABINE
     Indication: Neoplasm malignant
  23. TARCEVA [Concomitant]
     Active Substance: ERLOTINIB HYDROCHLORIDE
     Indication: Neoplasm malignant
  24. PERJETA [Concomitant]
     Active Substance: PERTUZUMAB
     Indication: Neoplasm malignant
  25. HERCEPTIN [Concomitant]
     Active Substance: TRASTUZUMAB
     Indication: Neoplasm malignant
  26. ZELBORAF [Concomitant]
     Active Substance: VEMURAFENIB
     Indication: Neoplasm malignant
  27. ERIVEDGE [Concomitant]
     Active Substance: VISMODEGIB
     Indication: Neoplasm malignant
  28. PULMOZYME [Concomitant]
     Active Substance: DORNASE ALFA
     Indication: Transplant
  29. CELLCEPT [Concomitant]
     Active Substance: MYCOPHENOLATE MOFETIL
     Indication: Transplant
  30. VALCYTE [Concomitant]
     Active Substance: VALGANCICLOVIR HYDROCHLORIDE
     Indication: Transplant
  31. FUZEON [Concomitant]
     Active Substance: ENFUVIRTIDE
     Indication: Viral infection
  32. INVIRASE [Concomitant]
     Active Substance: SAQUINAVIR MESYLATE
     Indication: Viral infection

REACTIONS (1)
  - Loss of consciousness [Unknown]

NARRATIVE: CASE EVENT DATE: 20250101
